FAERS Safety Report 8383227-6 (Version None)
Quarter: 2012Q1

REPORT INFORMATION
  Report Type: 
  Country: None (occurrence: None)
  Receive Date: 20120323
  Receipt Date: 20110824
  Transmission Date: 20120608
  Serious: Yes (Hospitalization)
  Sender: FDA-Public Use
  Company Number: 163-21880-11051291

PATIENT
  Age: 83 Year
  Sex: Female

DRUGS (14)
  1. ACIDOPHILUS (LACTOBACILLUS ACIDOPHILUS) [Concomitant]
  2. CALCIUM CARBONATE [Concomitant]
  3. VITAMIN B12 [Concomitant]
  4. VICODIN [Concomitant]
  5. ALPHA LIPOIC ACID (THIOCTIC ACID) [Concomitant]
  6. COUMADIN [Concomitant]
  7. PAXIL [Concomitant]
  8. ZOMETA [Concomitant]
  9. PAROXETINE HCL [Concomitant]
  10. ATIVAN [Concomitant]
  11. REVLIMID [Suspect]
     Indication: MULTIPLE MYELOMA
     Dosage: 10 MG, DAYS 1-21 Q 28 DAYS, PO
     Route: 048
     Dates: start: 20110328
  12. LORAZEPAM [Concomitant]
  13. COMPAZINE [Concomitant]
  14. DEXAMETHASONE [Concomitant]

REACTIONS (1)
  - BRONCHITIS [None]
